FAERS Safety Report 17267088 (Version 12)
Quarter: 2020Q1

REPORT INFORMATION
  Report Type: Report from Study
  Country: FR (occurrence: FR)
  Receive Date: 20200114
  Receipt Date: 20200302
  Transmission Date: 20200409
  Serious: Yes (Death, Hospitalization)
  Sender: FDA-Public Use
  Company Number: FR-EISAI MEDICAL RESEARCH-EC-2020-068394

PATIENT
  Age: 84 Year
  Sex: Female
  Weight: 46 kg

DRUGS (12)
  1. LENVATINIB [Suspect]
     Active Substance: LENVATINIB
     Indication: TRANSITIONAL CELL CARCINOMA
     Route: 048
     Dates: start: 20191216, end: 20191230
  2. KARDEGIC [Concomitant]
     Active Substance: ASPIRIN DL-LYSINE
     Dates: start: 20110517
  3. NEO-MERCAZOLE [Suspect]
     Active Substance: CARBIMAZOLE
     Indication: HYPERTHYROIDISM
     Dates: start: 20191207, end: 20200102
  4. LASILIX [Concomitant]
     Active Substance: FUROSEMIDE
     Dates: start: 20191230, end: 20200107
  5. HYDROCHLOROTHIAZIDE. [Concomitant]
     Active Substance: HYDROCHLOROTHIAZIDE
     Dates: start: 20010712, end: 20200102
  6. PEMBROLIZUMAB. [Suspect]
     Active Substance: PEMBROLIZUMAB
     Route: 041
     Dates: start: 20200116, end: 20200116
  7. PRAVASTATIN. [Concomitant]
     Active Substance: PRAVASTATIN
     Dates: start: 20010712
  8. BLOOD CELLS, RED [Concomitant]
     Active Substance: HUMAN RED BLOOD CELL
     Dates: start: 20200102, end: 20200102
  9. PEMBROLIZUMAB. [Suspect]
     Active Substance: PEMBROLIZUMAB
     Indication: TRANSITIONAL CELL CARCINOMA
     Route: 041
     Dates: start: 20191216, end: 20191216
  10. SODIUM CHLORIDE. [Concomitant]
     Active Substance: SODIUM CHLORIDE
     Dates: start: 20191216, end: 20191230
  11. INNOVAIR [Concomitant]
     Active Substance: BECLOMETHASONE DIPROPIONATE\FORMOTEROL
     Dates: start: 19890101, end: 20200112
  12. APROVEL [Concomitant]
     Active Substance: IRBESARTAN
     Dates: start: 20010712, end: 20200103

REACTIONS (1)
  - Febrile neutropenia [Recovered/Resolved]

NARRATIVE: CASE EVENT DATE: 20200102
